FAERS Safety Report 6660593-0 (Version None)
Quarter: 2010Q1

REPORT INFORMATION
  Report Type: 
  Country: None (occurrence: None)
  Receive Date: 20100331
  Receipt Date: 20090806
  Transmission Date: 20100710
  Serious: No
  Sender: FDA-Public Use
  Company Number: US-ABBOTT-09P-163-0590098-00

PATIENT
  Sex: Male

DRUGS (4)
  1. DEPAKENE [Suspect]
     Indication: MENTAL RETARDATION
     Route: 048
     Dates: end: 20090501
  2. DEPAKENE [Suspect]
     Indication: TOURETTE'S DISORDER
  3. DEPAKOTE [Suspect]
     Indication: MENTAL RETARDATION
     Route: 048
     Dates: start: 20090501
  4. DEPAKOTE [Suspect]
     Indication: TOURETTE'S DISORDER

REACTIONS (3)
  - LABORATORY TEST ABNORMAL [None]
  - NASOPHARYNGITIS [None]
  - WRONG TECHNIQUE IN DRUG USAGE PROCESS [None]
